FAERS Safety Report 5275825-3 (Version None)
Quarter: 2007Q1

REPORT INFORMATION
  Report Type: 
  Country: None (occurrence: None)
  Receive Date: 20070326
  Receipt Date: 20070318
  Transmission Date: 20070707
  Serious: Yes (Hospitalization, Other)
  Sender: FDA-Public Use
  Company Number: HQWYE102219MAR07

PATIENT
  Age: 36 Year
  Sex: Male
  Weight: 70 kg

DRUGS (3)
  1. RAPAMUNE [Suspect]
     Indication: PROPHYLAXIS AGAINST TRANSPLANT REJECTION
     Route: 048
     Dates: start: 20060701
  2. RAPAMUNE [Suspect]
     Route: 048
  3. RAPAMUNE [Suspect]
     Route: 048
     Dates: start: 20070311

REACTIONS (1)
  - KIDNEY TRANSPLANT REJECTION [None]
